FAERS Safety Report 14563424 (Version 1)
Quarter: 2018Q1

REPORT INFORMATION
  Report Type: Spontaneous
  Country: US (occurrence: US)
  Receive Date: 20180222
  Receipt Date: 20180222
  Transmission Date: 20180509
  Serious: No
  Sender: FDA-Public Use
  Company Number: US-GLAXOSMITHKLINE-US2018024835

PATIENT
  Age: 61 Year
  Sex: Female

DRUGS (1)
  1. ABREVA [Suspect]
     Active Substance: DOCOSANOL
     Indication: ORAL HERPES
     Dosage: 2 TO 3 TIMES FOR 3 DAYS ONLY, UNK
     Dates: start: 20180210

REACTIONS (3)
  - Incorrect drug administration duration [Unknown]
  - Inappropriate schedule of drug administration [Unknown]
  - Expired product administered [Unknown]

NARRATIVE: CASE EVENT DATE: 20180210
